FAERS Safety Report 14726876 (Version 1)
Quarter: 2018Q2

REPORT INFORMATION
  Report Type: Spontaneous
  Country: JP (occurrence: JP)
  Receive Date: 20180406
  Receipt Date: 20180406
  Transmission Date: 20180711
  Serious: Yes (Other)
  Sender: FDA-Public Use
  Company Number: JP-ROCHE-2094249

PATIENT
  Age: 87 Year
  Sex: Female

DRUGS (6)
  1. BONVIVA [Suspect]
     Active Substance: IBANDRONATE SODIUM
     Indication: OSTEOPOROSIS
     Route: 042
     Dates: start: 20151208, end: 2018
  2. TERAMURO COMBINATION TABLETS [Concomitant]
     Dosage: DOSAGE: 1 (UNIT UNCERTAINTY)
     Route: 048
  3. URSO [Concomitant]
     Active Substance: URSODIOL
     Dosage: DOSAGE: 3 (UNIT UNCERTAINTY)
     Route: 048
  4. FUROSEMIDE. [Concomitant]
     Active Substance: FUROSEMIDE
     Dosage: DOSAGE: 1 (UNIT UNCERTAINTY)
     Route: 048
  5. ALFACALCIDOL [Concomitant]
     Active Substance: ALFACALCIDOL
     Dosage: DOSAGE: 1 (UNIT UNCERTAINTY)
     Route: 048
  6. NEXIUM [Concomitant]
     Active Substance: ESOMEPRAZOLE MAGNESIUM
     Dosage: DOSAGE: 1 (UNIT UNCERTAINTY)
     Route: 048

REACTIONS (2)
  - Jaw fracture [Recovering/Resolving]
  - Osteonecrosis of jaw [Recovering/Resolving]

NARRATIVE: CASE EVENT DATE: 20180205
